FAERS Safety Report 4969656-9 (Version None)
Quarter: 2006Q2

REPORT INFORMATION
  Report Type: 
  Country: None (occurrence: None)
  Receive Date: 20060411
  Receipt Date: 20060406
  Transmission Date: 20061013
  Serious: Yes (Hospitalization)
  Sender: FDA-Public Use
  Company Number: IT-BOEHRINGER INGELHEIM PHARMACEUTICALS, INC.-2006-IT-00074IT

PATIENT
  Age: 40 Year
  Sex: Female

DRUGS (2)
  1. SPIRIVA [Suspect]
     Dates: start: 20060101, end: 20060101
  2. ALIFLUS [Concomitant]

REACTIONS (3)
  - FACIAL PALSY [None]
  - LOSS OF CONSCIOUSNESS [None]
  - VISUAL FIELD DEFECT [None]
